FAERS Safety Report 7089671-1 (Version None)
Quarter: 2010Q4

REPORT INFORMATION
  Report Type: 
  Country: None (occurrence: None)
  Receive Date: 20101108
  Receipt Date: 20091119
  Transmission Date: 20110411
  Serious: No
  Sender: FDA-Public Use
  Company Number: US-ABBOTT-09P-163-0610090-00

PATIENT
  Sex: Female
  Weight: 63.56 kg

DRUGS (10)
  1. TRICOR [Suspect]
     Indication: BLOOD CHOLESTEROL INCREASED
     Dosage: EVERY NIGHT
     Dates: start: 20020101, end: 20070101
  2. TRICOR [Suspect]
     Indication: HIGH DENSITY LIPOPROTEIN DECREASED
  3. TRICOR [Suspect]
     Indication: LOW DENSITY LIPOPROTEIN INCREASED
  4. LIPITOR [Suspect]
     Indication: BLOOD CHOLESTEROL INCREASED
     Dosage: EVERY NIGHT
     Dates: start: 20020101, end: 20070101
  5. LIPITOR [Suspect]
     Indication: HIGH DENSITY LIPOPROTEIN DECREASED
  6. LIPITOR [Suspect]
     Indication: LOW DENSITY LIPOPROTEIN INCREASED
  7. PLAVIX [Concomitant]
     Indication: MYOCARDIAL INFARCTION
  8. ASPIRIN [Concomitant]
     Indication: PRODUCT USED FOR UNKNOWN INDICATION
  9. ATENOLOL [Concomitant]
     Indication: ARTERIAL DISORDER
     Dosage: 50/25 MG
  10. FOLIC ACID [Concomitant]
     Indication: PRODUCT USED FOR UNKNOWN INDICATION

REACTIONS (1)
  - DIARRHOEA [None]
